FAERS Safety Report 7000736-2 (Version None)
Quarter: 2010Q3

REPORT INFORMATION
  Report Type: 
  Country: None (occurrence: None)
  Receive Date: 20100920
  Receipt Date: 20091120
  Transmission Date: 20110219
  Serious: No
  Sender: FDA-Public Use
  Company Number: US-ASTRAZENECA-2009SE27948

PATIENT
  Sex: Female
  Weight: 86.2 kg

DRUGS (1)
  1. SEROQUEL [Suspect]
     Route: 048

REACTIONS (4)
  - PALPITATIONS [None]
  - PIGMENTATION DISORDER [None]
  - VISION BLURRED [None]
  - WEIGHT INCREASED [None]
